FAERS Safety Report 9096053 (Version 1)
Quarter: 2013Q1

REPORT INFORMATION
  Report Type: Spontaneous
  Country: FR (occurrence: FR)
  Receive Date: 20130207
  Receipt Date: 20130207
  Transmission Date: 20140127
  Serious: Yes (Other)
  Sender: FDA-Public Use
  Company Number: FR-009507513-1302FRA000982

PATIENT
  Age: 85 Year
  Sex: Male

DRUGS (7)
  1. CHIBRO-PROSCAR [Suspect]
     Indication: PROSTATIC ADENOMA
     Dosage: UNK
     Route: 048
     Dates: end: 20120905
  2. ATACAND [Suspect]
     Indication: HYPERTENSION
     Dosage: UNK
     Route: 048
     Dates: end: 20120905
  3. DIAMICRON [Suspect]
     Indication: TYPE 2 DIABETES MELLITUS
     Dosage: UNK
     Route: 048
     Dates: end: 20120904
  4. KARDEGIC [Suspect]
     Indication: AORTIC VALVE REPLACEMENT
     Dosage: UNK
     Route: 048
  5. CRESTOR [Suspect]
     Indication: HYPERCHOLESTEROLAEMIA
     Dosage: UNK
     Route: 048
     Dates: end: 20120903
  6. GLUCOR [Suspect]
     Indication: DIABETES MELLITUS
     Dosage: UNK
     Route: 048
     Dates: end: 20120904
  7. ARIXTRA [Concomitant]
     Indication: PRODUCT USED FOR UNKNOWN INDICATION
     Dosage: UNK
     Route: 058
     Dates: start: 20120807

REACTIONS (1)
  - Hepatitis [Not Recovered/Not Resolved]
